FAERS Safety Report 15933582 (Version 1)
Quarter: 2019Q1

REPORT INFORMATION
  Report Type: Spontaneous
  Country: CN (occurrence: CN)
  Receive Date: 20190207
  Receipt Date: 20190207
  Transmission Date: 20190417
  Serious: Yes (Other)
  Sender: FDA-Public Use
  Company Number: CN-BAXTER-2019BAX002407

PATIENT
  Age: 52 Year
  Sex: Female
  Weight: 53 kg

DRUGS (4)
  1. 20% MANNITOL INJECTION [Suspect]
     Active Substance: MANNITOL
     Indication: VERTEBROBASILAR INSUFFICIENCY
  2. 20% MANNITOL INJECTION [Suspect]
     Active Substance: MANNITOL
     Indication: SPINAL OSTEOARTHRITIS
     Route: 041
     Dates: start: 20181130, end: 20181130
  3. 20% MANNITOL INJECTION [Suspect]
     Active Substance: MANNITOL
     Indication: HYPERLIPIDAEMIA
  4. 20% MANNITOL INJECTION [Suspect]
     Active Substance: MANNITOL
     Indication: DIZZINESS

REACTIONS (1)
  - Pruritus [Recovering/Resolving]

NARRATIVE: CASE EVENT DATE: 20181130
